FAERS Safety Report 9895427 (Version 1)
Quarter: 2014Q1

REPORT INFORMATION
  Report Type: Spontaneous
  Country: US (occurrence: US)
  Receive Date: 20140213
  Receipt Date: 20140213
  Transmission Date: 20141002
  Serious: No
  Sender: FDA-Public Use
  Company Number: US-BRISTOL-MYERS SQUIBB COMPANY-17365354

PATIENT
  Age: 67 Year
  Sex: Female
  Weight: 49.89 kg

DRUGS (5)
  1. ABATACEPT SUBQ INJECTION 125MG/ML [Suspect]
     Dosage: INJECT 125MG SUBQ ONCE WEEKLY FOR 4 WEEKS,?125MG/ML ORAL.
     Route: 058
  2. PREDNISONE [Concomitant]
     Dosage: TABS
     Route: 048
  3. TRAMADOL HCL [Concomitant]
     Dosage: TABS
     Route: 048
  4. LEFLUNOMIDE [Concomitant]
     Route: 048
  5. VITAMIN D [Concomitant]
     Dosage: 1DF:1000 UNITS?CAPS
     Route: 048

REACTIONS (2)
  - Nasopharyngitis [Unknown]
  - Paranasal sinus hypersecretion [Unknown]
